FAERS Safety Report 17562240 (Version 2)
Quarter: 2021Q4

REPORT INFORMATION
  Report Type: Spontaneous
  Country: IT (occurrence: IT)
  Receive Date: 20200319
  Receipt Date: 20211118
  Transmission Date: 20220303
  Serious: Yes (Other)
  Sender: FDA-Public Use
  Company Number: IT-CELLTRION HEALTHCARE HUNGARY KFT-2020IT019322

PATIENT
  Sex: Female

DRUGS (6)
  1. METHOTREXATE [Suspect]
     Active Substance: METHOTREXATE
     Indication: Rheumatoid arthritis
     Dosage: UNK
  2. METHOTREXATE [Suspect]
     Active Substance: METHOTREXATE
     Indication: Cryoglobulinaemia
     Dosage: 10 MG WEEKLY
  3. TRUXIMA [Suspect]
     Active Substance: RITUXIMAB-ABBS
     Indication: Cryoglobulinaemia
     Dosage: 1000 MG EVERY OTHER WEEK
  4. TRUXIMA [Suspect]
     Active Substance: RITUXIMAB-ABBS
     Indication: Rheumatoid arthritis
     Dosage: UNK
  5. ETANERCEPT [Suspect]
     Active Substance: ETANERCEPT
     Indication: Cryoglobulinaemia
     Dosage: 50 MG/WEEK
  6. ETANERCEPT [Suspect]
     Active Substance: ETANERCEPT
     Indication: Rheumatoid arthritis
     Dosage: UNK

REACTIONS (4)
  - Condition aggravated [Recovered/Resolved]
  - Cryoglobulinaemia [Recovered/Resolved]
  - Cutaneous vasculitis [Recovered/Resolved]
  - Product use in unapproved indication [Unknown]
